FAERS Safety Report 9455975 (Version 1)
Quarter: 2013Q3

REPORT INFORMATION
  Report Type: Spontaneous
  Country: US (occurrence: US)
  Receive Date: 20130813
  Receipt Date: 20130813
  Transmission Date: 20140515
  Serious: No
  Sender: FDA-Public Use
  Company Number: US-GALDERMA-US13001366

PATIENT
  Sex: Female
  Weight: 63 kg

DRUGS (16)
  1. CLOBEX [Suspect]
     Indication: ALOPECIA
     Route: 061
     Dates: start: 2010, end: 2011
  2. CLOBEX [Suspect]
     Indication: PRURITUS
  3. CLOBEX [Suspect]
     Indication: PRURITUS
     Route: 061
     Dates: start: 2010, end: 2011
  4. CLOBEX [Suspect]
     Indication: ALOPECIA
  5. CLOBETASOL PROPIONATE [Suspect]
     Indication: ALOPECIA
     Route: 061
     Dates: start: 201212
  6. CLOBETASOL PROPIONATE [Suspect]
     Indication: PRURITUS
  7. CICLOPIROX [Suspect]
     Indication: ALOPECIA
     Route: 061
     Dates: start: 201212, end: 20130416
  8. CICLOPIROX [Suspect]
     Indication: PRURITUS
  9. ZZZQUIL [Concomitant]
     Indication: SLEEP DISORDER
     Route: 048
  10. VITAMIN B COMPLEX [Concomitant]
     Route: 048
  11. VITAMIN D [Concomitant]
     Route: 048
  12. BIOTIN [Concomitant]
     Route: 048
  13. CALCIUM PLUS VITAMIN D3 [Concomitant]
     Route: 048
  14. MOMETASONE 0.1% CREAM [Concomitant]
     Indication: PRURITUS
     Route: 061
  15. DESOXIMETASONE 0.25% CREAM [Concomitant]
     Indication: PRURITUS
     Route: 061
  16. GARNIER HAIR RINSE [Concomitant]
     Route: 061

REACTIONS (3)
  - Condition aggravated [Not Recovered/Not Resolved]
  - Drug ineffective for unapproved indication [Not Recovered/Not Resolved]
  - Off label use [Not Recovered/Not Resolved]
